FAERS Safety Report 6478823-7 (Version None)
Quarter: 2009Q4

REPORT INFORMATION
  Report Type: 
  Country: None (occurrence: None)
  Receive Date: 20091207
  Receipt Date: 20091120
  Transmission Date: 20100525
  Serious: Yes (Other)
  Sender: FDA-Public Use
  Company Number: US-SANOFI-AVENTIS-2009SA006017

PATIENT
  Sex: Male

DRUGS (6)
  1. LANTUS [Suspect]
     Indication: TYPE 2 DIABETES MELLITUS
     Route: 058
     Dates: start: 20040101
  2. LANTUS [Suspect]
     Dosage: DOSE:FEW UNIT(S)
     Route: 058
     Dates: start: 20090901
  3. METFORMIN HCL [Concomitant]
     Dosage: STARTED IN 2004 WAS ABLE TO STOP MEDICATION SOMETIME IN PAST;BSUNDER CONTOL.
     Dates: start: 20040101, end: 20050101
  4. METFORMIN HCL [Concomitant]
     Dates: start: 20090901
  5. LUPRON [Concomitant]
     Dates: start: 20050101
  6. HUMALOG [Concomitant]
     Dates: start: 20091106

REACTIONS (6)
  - ABDOMINAL PAIN [None]
  - ABNORMAL BEHAVIOUR [None]
  - BLOOD GLUCOSE INCREASED [None]
  - FACE OEDEMA [None]
  - HYPOGLYCAEMIA [None]
  - PARTIAL SEIZURES [None]
